FAERS Safety Report 21898461 (Version 4)
Quarter: 2023Q2

REPORT INFORMATION
  Report Type: Report from Study
  Country: CN (occurrence: CN)
  Receive Date: 20230123
  Receipt Date: 20230518
  Transmission Date: 20230722
  Serious: Yes (Hospitalization)
  Sender: FDA-Public Use
  Company Number: CN-KARYOPHARM-2023KPT000363

PATIENT
  Age: 23 Year
  Sex: Female
  Weight: 50 kg

DRUGS (6)
  1. SELINEXOR [Suspect]
     Active Substance: SELINEXOR
     Indication: Diffuse large B-cell lymphoma
     Dosage: 80 MG, D1/8/15
     Route: 048
     Dates: start: 20220929, end: 20221110
  2. SELINEXOR [Suspect]
     Active Substance: SELINEXOR
     Dosage: 60 MG, D1/8/15
     Route: 048
     Dates: start: 20221118, end: 20230103
  3. LENALIDOMIDE [Suspect]
     Active Substance: LENALIDOMIDE
     Indication: Diffuse large B-cell lymphoma
     Dosage: 25 MG, D1-10
     Route: 048
     Dates: start: 20220929, end: 20230103
  4. RITUXIMAB [Suspect]
     Active Substance: RITUXIMAB
     Indication: Diffuse large B-cell lymphoma
     Dosage: 548 MG, 1X/4 WEEKS
     Route: 042
     Dates: start: 20220929, end: 20220929
  5. RITUXIMAB [Suspect]
     Active Substance: RITUXIMAB
     Dosage: 548 MG, 1X/4 WEEKS
     Route: 042
     Dates: start: 20221101, end: 20221101
  6. RITUXIMAB [Suspect]
     Active Substance: RITUXIMAB
     Dosage: 548 MG, 1X/4 WEEKS
     Route: 042
     Dates: start: 20221201, end: 20221201

REACTIONS (2)
  - Platelet count decreased [Recovered/Resolved]
  - Platelet count decreased [Recovered/Resolved]

NARRATIVE: CASE EVENT DATE: 20221111
